FAERS Safety Report 9335385 (Version 2)
Quarter: 2013Q3

REPORT INFORMATION
  Report Type: Spontaneous
  Country: DE (occurrence: DE)
  Receive Date: 20130605
  Receipt Date: 20130705
  Transmission Date: 20140515
  Serious: Yes (Hospitalization, Other)
  Sender: FDA-Public Use
  Company Number: DE-UCBSA-087506

PATIENT
  Age: 48 Year
  Sex: Female
  Weight: 65 kg

DRUGS (3)
  1. VIMPAT [Suspect]
     Indication: EPILEPSY
     Dosage: DOSE: 250 MG
     Route: 048
     Dates: start: 20090505, end: 2009
  2. VIMPAT [Suspect]
     Indication: EPILEPSY
     Dosage: DOSE: 300 MG
     Route: 048
     Dates: start: 2009
  3. VIMPAT [Suspect]
     Indication: EPILEPSY
     Dosage: DOSE: 350 MG
     Route: 048
     Dates: end: 20130505

REACTIONS (2)
  - Electrocardiogram QT prolonged [Recovering/Resolving]
  - Restlessness [Unknown]
